FAERS Safety Report 5763744-5 (Version None)
Quarter: 2008Q2

REPORT INFORMATION
  Report Type: 
  Country: None (occurrence: None)
  Receive Date: 20080610
  Receipt Date: 20080605
  Transmission Date: 20081010
  Serious: Yes (Hospitalization)
  Sender: FDA-Public Use
  Company Number: FR-BRISTOL-MYERS SQUIBB COMPANY-14218275

PATIENT
  Age: 77 Year
  Sex: Male

DRUGS (7)
  1. REYATAZ [Suspect]
     Indication: HIV INFECTION
     Dates: start: 20060815
  2. TRUVADA [Suspect]
     Indication: HIV INFECTION
     Dates: start: 20060815
  3. NORVIR [Suspect]
     Indication: HIV INFECTION
     Dates: start: 20060815
  4. IRBESARTAN [Concomitant]
     Dosage: 1 DOSAGE FORM = 1/2TABLET OF 150 MG
  5. FRACTAL [Concomitant]
  6. RIVOTRIL [Concomitant]
  7. ASPEGIC 1000 [Concomitant]

REACTIONS (1)
  - MYOCARDIAL INFARCTION [None]
